FAERS Safety Report 26198204 (Version 1)
Quarter: 2025Q4

REPORT INFORMATION
  Report Type: Spontaneous
  Country: GB (occurrence: GB)
  Receive Date: 20251224
  Receipt Date: 20251224
  Transmission Date: 20260117
  Serious: Yes (Other)
  Sender: PFIZER
  Company Number: GB-SA-2025SA377224

PATIENT
  Age: 67 Year
  Sex: Female

DRUGS (12)
  1. CARBOPLATIN [Suspect]
     Active Substance: CARBOPLATIN
     Indication: Small cell lung cancer
     Dosage: UNK
  2. ETOPOSIDE [Suspect]
     Active Substance: ETOPOSIDE
     Indication: Small cell lung cancer
     Dosage: UNK
     Route: 048
     Dates: start: 20201105
  3. ETOPOSIDE [Suspect]
     Active Substance: ETOPOSIDE
     Indication: Small cell lung cancer
     Dosage: UNK
     Route: 042
     Dates: start: 20201105
  4. TECENTRIQ [Suspect]
     Active Substance: ATEZOLIZUMAB
     Indication: Small cell lung cancer
     Dosage: 180 MG (D1)
     Dates: start: 20201105
  5. TECENTRIQ [Suspect]
     Active Substance: ATEZOLIZUMAB
     Dosage: 1680 MG, ONCE 4 WEEK (D1Q4W)
     Dates: start: 20230217
  6. TECENTRIQ [Suspect]
     Active Substance: ATEZOLIZUMAB
     Dosage: UNK (D1Q4W)
     Dates: start: 20210204
  7. TECENTRIQ [Suspect]
     Active Substance: ATEZOLIZUMAB
     Dosage: 1875 MG, ONCE 3 WEEK (D1Q3W)
     Route: 058
     Dates: start: 20250213
  8. TECENTRIQ [Suspect]
     Active Substance: ATEZOLIZUMAB
     Dosage: UNK, ONCE 3 WEEK
     Route: 058
     Dates: start: 202511
  9. LENOGRASTIM [Suspect]
     Active Substance: LENOGRASTIM
     Indication: Small cell lung cancer
     Dosage: UNK
  10. ATORVASTATIN [Concomitant]
     Active Substance: ATORVASTATIN
     Dosage: UNK
  11. QUININE [Concomitant]
     Active Substance: QUININE
     Dosage: UNK
  12. OMEPRAZOLE [Concomitant]
     Active Substance: OMEPRAZOLE
     Dosage: UNK

REACTIONS (9)
  - Skin toxicity [Unknown]
  - Arthropathy [Unknown]
  - Ill-defined disorder [Unknown]
  - Hypothyroidism [Unknown]
  - Inflammation [Unknown]
  - Lung consolidation [Unknown]
  - Lung disorder [Unknown]
  - Oesophageal disorder [Unknown]
  - Hepatic cyst [Unknown]

NARRATIVE: CASE EVENT DATE: 20210201
